FAERS Safety Report 18117026 (Version 2)
Quarter: 2020Q3

REPORT INFORMATION
  Report Type: Report from Study
  Country: US (occurrence: US)
  Receive Date: 20200805
  Receipt Date: 20200925
  Transmission Date: 20201103
  Serious: No
  Sender: FDA-Public Use
  Company Number: NVSC2020US217557

PATIENT
  Sex: Female

DRUGS (1)
  1. ADAKVEO [Suspect]
     Active Substance: CRIZANLIZUMAB-TMCA
     Indication: PRODUCT USED FOR UNKNOWN INDICATION
     Dosage: UNK QMO
     Route: 042

REACTIONS (5)
  - Haemoglobin decreased [Unknown]
  - Urinary tract infection [Unknown]
  - Headache [Unknown]
  - Depression [Unknown]
  - Pain [Unknown]
